FAERS Safety Report 5380824-7 (Version None)
Quarter: 2007Q3

REPORT INFORMATION
  Report Type: 
  Country: None (occurrence: None)
  Receive Date: 20070706
  Receipt Date: 20070628
  Transmission Date: 20080115
  Serious: Yes (Hospitalization)
  Sender: FDA-Public Use
  Company Number: HQWYE839928JUN07

PATIENT
  Age: 41 Year
  Sex: Male

DRUGS (6)
  1. INIPOMP [Suspect]
     Route: 048
     Dates: start: 20020101
  2. HYDREA [Concomitant]
     Dosage: ^DF^
     Route: 048
     Dates: start: 20020101, end: 20070423
  3. ELISOR [Suspect]
     Indication: ACUTE MYOCARDIAL INFARCTION
     Dosage: ^DF^
     Route: 048
     Dates: start: 20020101
  4. ACEBUTOLOL HYDROCHLORIDE [Suspect]
     Indication: ACUTE MYOCARDIAL INFARCTION
     Dosage: ^DF^
     Route: 048
     Dates: start: 20020101
  5. KARDEGIC [Suspect]
     Indication: ACUTE MYOCARDIAL INFARCTION
     Dosage: ^DF^
     Route: 048
     Dates: start: 20020101
  6. ADANCOR [Suspect]
     Indication: ACUTE MYOCARDIAL INFARCTION
     Dosage: ^DF^
     Route: 048
     Dates: start: 20020101

REACTIONS (1)
  - ANAEMIA HAEMOLYTIC AUTOIMMUNE [None]
